FAERS Safety Report 20726943 (Version 14)
Quarter: 2024Q3

REPORT INFORMATION
  Report Type: Spontaneous
  Country: US (occurrence: US)
  Receive Date: 20220419
  Receipt Date: 20240930
  Transmission Date: 20241017
  Serious: No
  Sender: BRISTOL MYERS SQUIBB
  Company Number: US-BRISTOL-MYERS SQUIBB COMPANY-2022-018249

PATIENT
  Age: 61 Year
  Sex: Male

DRUGS (4)
  1. REVLIMID [Suspect]
     Active Substance: LENALIDOMIDE
     Indication: Plasma cell myeloma
     Route: 048
     Dates: start: 20200731
  2. REVLIMID [Suspect]
     Active Substance: LENALIDOMIDE
     Indication: Neoplasm malignant
     Route: 048
     Dates: start: 20200911
  3. REVLIMID [Suspect]
     Active Substance: LENALIDOMIDE
     Route: 048
  4. MELATONIN [Suspect]
     Active Substance: MELATONIN
     Indication: Product used for unknown indication

REACTIONS (21)
  - Diarrhoea [Unknown]
  - Rash [Not Recovered/Not Resolved]
  - Platelet count decreased [Unknown]
  - White blood cell count decreased [Unknown]
  - Hypoaesthesia [Unknown]
  - Insomnia [Unknown]
  - Fatigue [Unknown]
  - Dizziness [Unknown]
  - Chest discomfort [Unknown]
  - Dyspnoea [Unknown]
  - Product physical issue [Unknown]
  - Hypertension [Unknown]
  - Blood glucose increased [Unknown]
  - Nausea [Unknown]
  - Off label use [Unknown]
  - Headache [Unknown]
  - Skin fissures [Unknown]
  - Seasonal allergy [Unknown]
  - Pruritus [Unknown]
  - Paraesthesia [Recovered/Resolved]
  - Peripheral swelling [Unknown]

NARRATIVE: CASE EVENT DATE: 20220405
